FAERS Safety Report 4287138-7 (Version None)
Quarter: 2004Q1

REPORT INFORMATION
  Report Type: 
  Country: None (occurrence: None)
  Receive Date: 20040126
  Receipt Date: 20030820
  Transmission Date: 20041129
  Serious: No
  Sender: FDA-Public Use
  Company Number: USA030844931

PATIENT
  Age: 67 Year
  Weight: 60 kg

DRUGS (5)
  1. FORTEO [Suspect]
     Indication: OSTEOPENIA
     Dosage: 20 UG/DAY
     Dates: start: 20030814, end: 20030820
  2. ASPIRIN [Concomitant]
  3. FIORICET [Concomitant]
  4. VITAMIN CAP [Concomitant]
  5. OSCAL (CALCIUM CARBONATE) [Concomitant]

REACTIONS (10)
  - DIZZINESS [None]
  - ERYTHEMA [None]
  - HEADACHE [None]
  - INJECTION SITE ERYTHEMA [None]
  - INJECTION SITE MASS [None]
  - INJECTION SITE PAIN [None]
  - INJECTION SITE RASH [None]
  - MUSCULAR WEAKNESS [None]
  - NAUSEA [None]
  - PAIN IN EXTREMITY [None]
